FAERS Safety Report 7682555-7 (Version None)
Quarter: 2011Q3

REPORT INFORMATION
  Report Type: 
  Country: None (occurrence: None)
  Receive Date: 20110810
  Receipt Date: 20110729
  Transmission Date: 20111222
  Serious: Yes (Hospitalization, Disabling)
  Sender: FDA-Public Use
  Company Number: 2011MA010877

PATIENT
  Age: 84 Year
  Sex: Female

DRUGS (9)
  1. TRAMADOL HYDROCHLORIDE [Suspect]
     Indication: BACK PAIN
     Dosage: 50 MG;TID;PO
     Route: 048
     Dates: start: 20110618, end: 20110628
  2. IMOVANE [Concomitant]
  3. LOSARTAN [Concomitant]
  4. PARACET (PARACETAMOL) [Suspect]
     Indication: BACK PAIN
     Dosage: 1 GRAM;QID;PO
     Route: 048
     Dates: start: 20110618
  5. LAXOBERAL [Concomitant]
  6. NEXIUM [Concomitant]
  7. ARTHROTEC [Suspect]
     Indication: BACK PAIN
     Dosage: ;BID;PO
     Route: 048
     Dates: start: 20110618
  8. VESICARE [Concomitant]
  9. NORSPAN (NO PREF. NAME) [Suspect]
     Indication: BACK PAIN
     Dosage: 15 MCG;QH;TDER
     Route: 062
     Dates: start: 20110618

REACTIONS (4)
  - HYPOPHAGIA [None]
  - DRUG INEFFECTIVE [None]
  - CONSTIPATION [None]
  - RENAL FAILURE [None]
